FAERS Safety Report 5546738-4 (Version None)
Quarter: 2007Q4

REPORT INFORMATION
  Report Type: 
  Country: None (occurrence: None)
  Receive Date: 20071207
  Receipt Date: 20071207
  Transmission Date: 20080405
  Serious: Yes (Hospitalization)
  Sender: FDA-Public Use
  Company Number: None

PATIENT
  Sex: Female
  Weight: 67.3 kg

DRUGS (4)
  1. BEVACIZUMAB (RHUMAB VEGF) [Suspect]
     Dosage: 664 MG
  2. LEUCOVORIN CALCIUM [Suspect]
     Dosage: 1408 MG
  3. ELOXATIN [Suspect]
     Dosage: 0 MG
  4. FLUOROURACIL [Suspect]
     Dosage: 7392 MG

REACTIONS (3)
  - BLOOD PRESSURE INCREASED [None]
  - HEADACHE [None]
  - VOMITING [None]
